FAERS Safety Report 20411226 (Version 1)
Quarter: 2022Q1

REPORT INFORMATION
  Report Type: Spontaneous
  Country: US (occurrence: None)
  Receive Date: 20220201
  Receipt Date: 20220201
  Transmission Date: 20220423
  Serious: No
  Sender: FDA-Public Use
  Company Number: None

PATIENT
  Age: 69 Year
  Sex: Male

DRUGS (1)
  1. COSENTYX [Suspect]
     Active Substance: SECUKINUMAB
     Indication: Rheumatoid arthritis
     Dosage: OTHER FREQUENCY : 2 PENS/4 WEEKS;?
     Route: 058
     Dates: start: 20200803

REACTIONS (4)
  - Arthralgia [None]
  - Joint swelling [None]
  - Disease recurrence [None]
  - Drug ineffective [None]

NARRATIVE: CASE EVENT DATE: 20211201
